FAERS Safety Report 5299932-4 (Version None)
Quarter: 2007Q2

REPORT INFORMATION
  Report Type: 
  Country: None (occurrence: None)
  Receive Date: 20070410
  Receipt Date: 20070402
  Transmission Date: 20071010
  Serious: Yes (Other)
  Sender: FDA-Public Use
  Company Number: D0052518A

PATIENT
  Age: 59 Year
  Sex: Female
  Weight: 85.8206 kg

DRUGS (1)
  1. AVANDAMET [Suspect]
     Indication: DIABETES MELLITUS NON-INSULIN-DEPENDENT
     Dosage: 1002 MG / TWICE PER DAY / ORAL
     Route: 048
     Dates: start: 20040601, end: 20070201

REACTIONS (3)
  - FOOT FRACTURE [None]
  - RASH [None]
  - WEIGHT INCREASED [None]
